FAERS Safety Report 15566099 (Version 1)
Quarter: 2018Q4

REPORT INFORMATION
  Report Type: Spontaneous
  Country: US (occurrence: US)
  Receive Date: 20181030
  Receipt Date: 20181030
  Transmission Date: 20190205
  Serious: No
  Sender: FDA-Public Use
  Company Number: US-NOVOPROD-583365

PATIENT
  Age: 60 Year
  Sex: Female

DRUGS (3)
  1. VAGIFEM LD [Suspect]
     Active Substance: ESTRADIOL
     Indication: VULVOVAGINAL DRYNESS
     Dosage: UNK
     Route: 067
     Dates: start: 2014, end: 201710
  2. VAGIFEM LD [Suspect]
     Active Substance: ESTRADIOL
     Indication: URINARY TRACT INFECTION
  3. VAGIFEM LD [Suspect]
     Active Substance: ESTRADIOL
     Indication: ATROPHIC VULVOVAGINITIS

REACTIONS (1)
  - Breast tenderness [Recovered/Resolved]
